FAERS Safety Report 8318160-9 (Version None)
Quarter: 2012Q2

REPORT INFORMATION
  Report Type: 
  Country: None (occurrence: None)
  Receive Date: 20120427
  Receipt Date: 20120420
  Transmission Date: 20120825
  Serious: Yes (Other)
  Sender: FDA-Public Use
  Company Number: CA-ABBOTT-12P-028-0898241-00

PATIENT
  Sex: Female

DRUGS (2)
  1. CRESTOR [Concomitant]
     Indication: DYSLIPIDAEMIA
  2. HUMIRA [Suspect]
     Indication: RHEUMATOID ARTHRITIS
     Route: 058
     Dates: start: 20040622

REACTIONS (9)
  - RHEUMATOID ARTHRITIS [None]
  - ARTHROPATHY [None]
  - DYSLIPIDAEMIA [None]
  - LIGAMENT OPERATION [None]
  - BONE EROSION [None]
  - TENDON DISORDER [None]
  - JOINT STIFFNESS [None]
  - NODULE [None]
  - JOINT ARTHROPLASTY [None]
